FAERS Safety Report 7673918-4 (Version None)
Quarter: 2011Q3

REPORT INFORMATION
  Report Type: 
  Country: None (occurrence: None)
  Receive Date: 20110810
  Receipt Date: 20110404
  Transmission Date: 20111222
  Serious: No
  Sender: FDA-Public Use
  Company Number: US-GLAXOSMITHKLINE-A0922487A

PATIENT
  Age: 61 Year
  Sex: Female

DRUGS (4)
  1. UNKNOWN MEDICATION [Concomitant]
  2. PAXIL [Suspect]
     Indication: DEPRESSION
     Dosage: 20MG PER DAY
     Route: 048
     Dates: start: 20110326
  3. UNKNOWN MEDICATION [Concomitant]
  4. TORSEMIDE [Concomitant]

REACTIONS (3)
  - PAIN [None]
  - DIZZINESS [None]
  - NAUSEA [None]
